FAERS Safety Report 7815751-6 (Version None)
Quarter: 2011Q4

REPORT INFORMATION
  Report Type: 
  Country: None (occurrence: None)
  Receive Date: 20111014
  Receipt Date: 20111007
  Transmission Date: 20120403
  Serious: Yes (Hospitalization)
  Sender: FDA-Public Use
  Company Number: PHEH2011US01476

PATIENT
  Sex: Female
  Weight: 86.168 kg

DRUGS (22)
  1. TOBI [Suspect]
     Dosage: 300 MG, BID IN A CYCLE OF 28 DAYS ON AND OFF
     Dates: start: 20110601
  2. GLIMEPIRIDE [Concomitant]
  3. AMBIEN [Concomitant]
  4. PAXIL [Concomitant]
  5. MULTIVITAMINS AND D, E, FE, CA [Concomitant]
  6. SPIRIVA [Concomitant]
  7. PROTONIX [Concomitant]
  8. DULCOLAX [Concomitant]
  9. VITAMIN K TAB [Concomitant]
  10. ADVAIR DISKUS 100/50 [Concomitant]
  11. LORTAB [Concomitant]
  12. BUSPAR [Concomitant]
  13. FLONASE [Concomitant]
  14. METFORMIN HYDROCHLORIDE [Concomitant]
  15. PREDNISONE [Concomitant]
  16. PROBIOTICS [Concomitant]
  17. SINGULAIR [Concomitant]
  18. PULMOZYME [Concomitant]
     Dates: start: 20110601
  19. TOBI [Suspect]
     Indication: CYSTIC FIBROSIS
     Dosage: 300 MG, BID IN A CYCLE OF 28 DAYS ON AND OFF
     Dates: start: 20110501
  20. ALBUTEROL [Concomitant]
  21. LISINOPRIL [Concomitant]
  22. AMLODIPINE [Concomitant]

REACTIONS (5)
  - BRONCHITIS [None]
  - DYSPHAGIA [None]
  - DRY MOUTH [None]
  - DYSPHONIA [None]
  - WHEEZING [None]
